FAERS Safety Report 7368930-9 (Version None)
Quarter: 2011Q1

REPORT INFORMATION
  Report Type: 
  Country: None (occurrence: None)
  Receive Date: 20110321
  Receipt Date: 20110321
  Transmission Date: 20110831
  Serious: Yes (Hospitalization)
  Sender: FDA-Public Use
  Company Number: None

PATIENT
  Sex: Female
  Weight: 67 kg

DRUGS (6)
  1. ETOPOSIDE [Suspect]
     Dosage: 489.6 MG
  2. VINCRISTINE SULFATE [Suspect]
     Dosage: 2.72 MG
  3. DOXORUBICIN HCL [Suspect]
     Dosage: 97.92 MG
  4. PREDNISONE [Suspect]
     Dosage: 1000 MG
  5. CYCLOPHOSPHAMIDE [Suspect]
     Dosage: 1836 MG
  6. RITUXIMAB (MOAB C2B8 ANTI CD20, CHIMERIC) [Suspect]
     Dosage: 637 MG

REACTIONS (7)
  - PRODUCTIVE COUGH [None]
  - ANAEMIA [None]
  - GASTRIC ULCER [None]
  - FEBRILE NEUTROPENIA [None]
  - CLOSTRIDIUM DIFFICILE COLITIS [None]
  - DEHYDRATION [None]
  - PLATELET COUNT DECREASED [None]
